FAERS Safety Report 4626059-4 (Version None)
Quarter: 2005Q2

REPORT INFORMATION
  Report Type: 
  Country: None (occurrence: None)
  Receive Date: 20050404
  Receipt Date: 20030605
  Transmission Date: 20051028
  Serious: Yes (Hospitalization, Other)
  Sender: FDA-Public Use
  Company Number: US-MERCK-0306USA00723

PATIENT
  Age: 60 Year
  Sex: Male

DRUGS (6)
  1. VIOXX [Suspect]
     Indication: BACK PAIN
     Route: 048
     Dates: start: 20000406, end: 20000410
  2. VIOXX [Suspect]
     Route: 048
     Dates: start: 20000411, end: 20010101
  3. VIOXX [Suspect]
     Route: 048
     Dates: start: 20010726, end: 20020417
  4. WYGESIC TABLETS [Concomitant]
     Route: 065
  5. ULTRAM [Concomitant]
     Route: 065
  6. BLOOD THINNER (UNSPECIFIED) [Concomitant]
     Route: 065
     Dates: start: 20010726

REACTIONS (48)
  - ABDOMINAL PAIN [None]
  - ANGINA PECTORIS [None]
  - AORTIC VALVE SCLEROSIS [None]
  - ASTHENIA [None]
  - ATELECTASIS [None]
  - BLOOD LACTATE DEHYDROGENASE DECREASED [None]
  - BLOOD TRIGLYCERIDES INCREASED [None]
  - CAROTID ARTERY DISEASE [None]
  - CEREBELLAR INFARCTION [None]
  - CEREBROVASCULAR ACCIDENT [None]
  - CHEST WALL PAIN [None]
  - COLONIC POLYP [None]
  - CONVULSION [None]
  - DRUG INEFFECTIVE [None]
  - DYSARTHRIA [None]
  - EJECTION FRACTION DECREASED [None]
  - EXOSTOSIS [None]
  - FACIAL PALSY [None]
  - FALL [None]
  - FATIGUE [None]
  - HAEMATOCRIT DECREASED [None]
  - HAEMOPTYSIS [None]
  - HAEMORRHOIDS [None]
  - HEMIPARESIS [None]
  - HIGH DENSITY LIPOPROTEIN DECREASED [None]
  - HYPERCHOLESTEROLAEMIA [None]
  - HYPERLIPIDAEMIA [None]
  - HYPERTENSION [None]
  - HYPOAESTHESIA [None]
  - HYPONATRAEMIA [None]
  - INTERMITTENT CLAUDICATION [None]
  - INTERVERTEBRAL DISC SPACE NARROWING [None]
  - LEUKOCYTOSIS [None]
  - LOW DENSITY LIPOPROTEIN INCREASED [None]
  - LUNG CONSOLIDATION [None]
  - LUNG INFILTRATION [None]
  - MALAISE [None]
  - MITRAL VALVE INCOMPETENCE [None]
  - MUSCLE SPASMS [None]
  - PAIN IN EXTREMITY [None]
  - PARAESTHESIA [None]
  - PLEURISY [None]
  - PNEUMONIA [None]
  - POLYP COLORECTAL [None]
  - RENAL CYST [None]
  - SENSORY DISTURBANCE [None]
  - TRANSIENT ISCHAEMIC ATTACK [None]
  - TRICUSPID VALVE INCOMPETENCE [None]
